FAERS Safety Report 7276099-4 (Version None)
Quarter: 2011Q1

REPORT INFORMATION
  Report Type: 
  Country: None (occurrence: None)
  Receive Date: 20110204
  Receipt Date: 20110110
  Transmission Date: 20110831
  Serious: Yes (Hospitalization)
  Sender: FDA-Public Use
  Company Number: US-KINGPHARMUSA00001-K201100050

PATIENT
  Age: 80 Year
  Sex: Male
  Weight: 72 kg

DRUGS (5)
  1. ZOLEDRONIC ACID [Suspect]
     Dosage: 4 MG, UNK
     Dates: start: 20021224, end: 20050701
  2. ALTACE [Suspect]
     Dosage: UNK
     Route: 048
     Dates: start: 20060101
  3. PREDNISONE [Concomitant]
  4. ARANESP [Suspect]
     Indication: RENAL FAILURE
     Dosage: UNK
  5. ACEBUTOLOL HYDROCHLORIDE [Suspect]
     Dosage: UNK
     Route: 048

REACTIONS (9)
  - LYMPHADENOPATHY [None]
  - HYPERKALAEMIA [None]
  - SWELLING FACE [None]
  - MALAISE [None]
  - OSTEITIS [None]
  - PYREXIA [None]
  - OSTEONECROSIS OF JAW [None]
  - FACE OEDEMA [None]
  - INFLAMMATION [None]
